FAERS Safety Report 4898695-1 (Version None)
Quarter: 2006Q1

REPORT INFORMATION
  Report Type: 
  Country: None (occurrence: None)
  Receive Date: 20060202
  Receipt Date: 20051122
  Transmission Date: 20060701
  Serious: Yes (Hospitalization)
  Sender: FDA-Public Use
  Company Number: US-BRISTOL-MYERS SQUIBB COMPANY-13190434

PATIENT
  Age: 55 Year
  Sex: Male
  Weight: 107 kg

DRUGS (12)
  1. CETUXIMAB [Suspect]
     Indication: NON-SMALL CELL LUNG CANCER
     Dosage: DOSE DELAYED/OMITTED.
     Route: 042
     Dates: start: 20050906
  2. CARBOPLATIN [Suspect]
     Indication: NON-SMALL CELL LUNG CANCER
     Dosage: DOSE REDUCED THAN DISCONTINUED.
     Route: 042
     Dates: start: 20050913, end: 20051108
  3. PACLITAXEL [Suspect]
     Indication: NON-SMALL CELL LUNG CANCER
     Dosage: DOSE REDUCED TO 138 MG THEN DISCONTINUED.
     Route: 042
     Dates: start: 20050913, end: 20051122
  4. METFORMIN HCL [Concomitant]
     Route: 048
  5. INDOMETHACIN [Concomitant]
     Route: 048
  6. ALLOPURINOL [Concomitant]
     Route: 048
  7. ACTOS [Concomitant]
     Route: 048
  8. FLUCONAZOLE [Concomitant]
     Route: 048
  9. ZANTAC [Concomitant]
     Route: 048
  10. COLACE [Concomitant]
     Route: 048
  11. MORPHINE [Concomitant]
     Indication: PAIN
     Route: 048
  12. FLUOXETINE [Concomitant]

REACTIONS (2)
  - BLOOD MAGNESIUM DECREASED [None]
  - DEHYDRATION [None]
